FAERS Safety Report 5454638-3 (Version None)
Quarter: 2007Q3

REPORT INFORMATION
  Report Type: 
  Country: None (occurrence: None)
  Receive Date: 20070917
  Receipt Date: 20060829
  Transmission Date: 20080115
  Serious: No
  Sender: FDA-Public Use
  Company Number: US-ASTRAZENECA-2006UW12833

PATIENT
  Age: 47 Year
  Sex: Female
  Weight: 81.6 kg

DRUGS (6)
  1. SEROQUEL [Suspect]
     Indication: BIPOLAR DISORDER
     Route: 048
     Dates: start: 20010601
  2. SEROQUEL [Suspect]
     Indication: AFFECTIVE DISORDER
     Route: 048
     Dates: start: 20010601
  3. AMBIEN [Concomitant]
  4. MILLED FLAX SEED [Concomitant]
  5. CYMBALTA [Concomitant]
  6. PROVIGIL [Concomitant]

REACTIONS (9)
  - APPETITE DISORDER [None]
  - CONSTIPATION [None]
  - DIZZINESS [None]
  - DRY MOUTH [None]
  - HANGOVER [None]
  - INSOMNIA [None]
  - LOSS OF CONSCIOUSNESS [None]
  - NEPHROLITHIASIS [None]
  - SOMNOLENCE [None]
